FAERS Safety Report 20706418 (Version 1)
Quarter: 2022Q2

REPORT INFORMATION
  Report Type: Spontaneous
  Country: US (occurrence: None)
  Receive Date: 20220413
  Receipt Date: 20220413
  Transmission Date: 20220720
  Serious: Yes (Other)
  Sender: FDA-Public Use
  Company Number: None

PATIENT
  Age: 34 Year
  Sex: Male

DRUGS (3)
  1. SUBOXONE [Suspect]
     Active Substance: BUPRENORPHINE HYDROCHLORIDE\NALOXONE HYDROCHLORIDE
     Indication: Drug use disorder
     Dosage: FREQUENCY : TWICE A DAY;?
     Route: 060
  2. TRAZODONE [Concomitant]
     Active Substance: TRAZODONE HYDROCHLORIDE
     Dates: start: 20210723, end: 20220413
  3. HYDROXYZINE HYDROCHLORIDE [Concomitant]
     Active Substance: HYDROXYZINE HYDROCHLORIDE
     Dates: start: 20210723, end: 20220209

REACTIONS (6)
  - Hypoaesthesia [None]
  - Swollen tongue [None]
  - Pharyngeal swelling [None]
  - Dyspnoea [None]
  - Nausea [None]
  - Oral mucosal erythema [None]

NARRATIVE: CASE EVENT DATE: 20220413
